FAERS Safety Report 6880001-4 (Version None)
Quarter: 2010Q3

REPORT INFORMATION
  Report Type: 
  Country: None (occurrence: None)
  Receive Date: 20100728
  Receipt Date: 20100721
  Transmission Date: 20110219
  Serious: Yes (Other)
  Sender: FDA-Public Use
  Company Number: PHHY2010US33132

PATIENT

DRUGS (2)
  1. RITALIN [Suspect]
     Dosage: MATERNAL DOSE UNKNOWN
     Route: 064
  2. ADDERALL 10 [Suspect]
     Dosage: MATERNAL DOSE UNKNOWN
     Route: 064

REACTIONS (2)
  - AUTISM [None]
  - DRUG EXPOSURE DURING PREGNANCY [None]
